FAERS Safety Report 6033488-3 (Version None)
Quarter: 2009Q1

REPORT INFORMATION
  Report Type: 
  Country: None (occurrence: None)
  Receive Date: 20090109
  Receipt Date: 20090102
  Transmission Date: 20090719
  Serious: Yes (Other)
  Sender: FDA-Public Use
  Company Number: DE-ROXANE LABORATORIES, INC.-2009-RO-00004RO

PATIENT
  Age: 60 Year
  Sex: Male

DRUGS (5)
  1. MIDAZOLAM HCL [Suspect]
     Indication: SEDATIVE THERAPY
     Route: 042
  2. MEPERIDINE HCL [Suspect]
     Indication: ANALGESIA
     Route: 042
  3. SODIUM CHLORIDE 0.9% [Concomitant]
     Route: 042
  4. LIDOCAINE [Concomitant]
     Route: 042
  5. HEPARIN [Concomitant]
     Route: 042

REACTIONS (6)
  - DRUG ADMINISTRATION ERROR [None]
  - ERYTHEMA [None]
  - FEELING HOT [None]
  - PAIN IN EXTREMITY [None]
  - RASH PAPULAR [None]
  - SKIN BURNING SENSATION [None]
